FAERS Safety Report 7246354-2 (Version None)
Quarter: 2011Q1

REPORT INFORMATION
  Report Type: 
  Country: None (occurrence: None)
  Receive Date: 20110126
  Receipt Date: 20110121
  Transmission Date: 20110831
  Serious: Yes (Other)
  Sender: FDA-Public Use
  Company Number: CN-PFIZER INC-2011014914

PATIENT
  Sex: Male

DRUGS (2)
  1. PROSTAT [Concomitant]
  2. CARDURA [Suspect]
     Indication: PROSTATITIS
     Dosage: 1 TABLET, ONCE DAILY
     Route: 048
     Dates: start: 20110120, end: 20110120

REACTIONS (2)
  - DIARRHOEA [None]
  - HAEMATOCHEZIA [None]
